FAERS Safety Report 24647945 (Version 1)
Quarter: 2024Q4

REPORT INFORMATION
  Report Type: Spontaneous
  Country: ES (occurrence: ES)
  Receive Date: 20241121
  Receipt Date: 20241121
  Transmission Date: 20250115
  Serious: Yes (Other)
  Sender: AMGEN
  Company Number: ES-ROCHE-10000127539

PATIENT
  Sex: Female
  Weight: 62 kg

DRUGS (4)
  1. TRASTUZUMAB [Suspect]
     Active Substance: TRASTUZUMAB
     Indication: HER2 positive breast cancer
     Dosage: 18 CYCLE
     Route: 065
     Dates: start: 20231128, end: 20240827
  2. PERJETA [Suspect]
     Active Substance: PERTUZUMAB
     Indication: HER2 positive breast cancer
     Dosage: UNK UNK, Q3WK
     Route: 065
     Dates: start: 20231128, end: 20240827
  3. DOCETAXEL [Suspect]
     Active Substance: DOCETAXEL
     Indication: HER2 positive breast cancer
     Dosage: UNK
     Route: 065
  4. TRASTUZUMAB DERUXTECAN [Suspect]
     Active Substance: TRASTUZUMAB DERUXTECAN
     Indication: HER2 positive breast cancer
     Dosage: UNK
     Route: 065
     Dates: start: 20240917

REACTIONS (3)
  - Breast cancer metastatic [Unknown]
  - Drug ineffective [Unknown]
  - Off label use [Unknown]
